FAERS Safety Report 6356241-X (Version None)
Quarter: 2009Q3

REPORT INFORMATION
  Report Type: 
  Country: None (occurrence: None)
  Receive Date: 20090915
  Receipt Date: 20090907
  Transmission Date: 20100115
  Serious: Yes (Hospitalization)
  Sender: FDA-Public Use
  Company Number: GR-ROCHE-654649

PATIENT
  Age: 47 Year
  Sex: Male

DRUGS (9)
  1. PEGASYS [Suspect]
     Indication: HEPATITIS C
     Dosage: FIRST COURSE
     Route: 058
     Dates: start: 20040301, end: 20040901
  2. PEGASYS [Suspect]
     Route: 058
  3. RITUXIMAB [Suspect]
     Indication: NON-HODGKIN'S LYMPHOMA
     Dosage: TAKEN ON DAY 1
     Route: 065
     Dates: start: 20050201
  4. REBETOL [Suspect]
     Indication: HEPATITIS C
     Dosage: REPORTED AS SHERING-PUGH
     Route: 048
     Dates: start: 20040301, end: 20040901
  5. REBETOL [Suspect]
     Route: 048
  6. CAELYX [Suspect]
     Indication: NON-HODGKIN'S LYMPHOMA
     Dosage: TAKEN ON DAY 1 OF EVERY 21 DAYS CYCLE
     Route: 065
     Dates: start: 20050201
  7. CYCLOPHOSPHAMIDE [Suspect]
     Indication: NON-HODGKIN'S LYMPHOMA
     Dosage: TAKEN ON DAY 1 OF EVERY 21 DAYS CYCLE
     Route: 065
     Dates: start: 20050201
  8. VINCRISTINE [Suspect]
     Indication: NON-HODGKIN'S LYMPHOMA
     Dosage: TAKEN ON DAY 1 OF EVERY 21 DAYS CYCLE
     Route: 065
     Dates: start: 20050201
  9. PREDNISONE [Suspect]
     Indication: NON-HODGKIN'S LYMPHOMA
     Dosage: DAY 1-5 OF EVERY 21 DAYS CYCLE.
     Route: 065
     Dates: start: 20050201

REACTIONS (3)
  - ACUTE MYOCARDIAL INFARCTION [None]
  - DIFFUSE LARGE B-CELL LYMPHOMA [None]
  - HEPATITIS C [None]
